FAERS Safety Report 7809174-3 (Version None)
Quarter: 2011Q4

REPORT INFORMATION
  Report Type: 
  Country: None (occurrence: None)
  Receive Date: 20111012
  Receipt Date: 20111003
  Transmission Date: 20120403
  Serious: Yes (Other)
  Sender: FDA-Public Use
  Company Number: US-ROCHE-715217

PATIENT
  Sex: Female
  Weight: 73.094 kg

DRUGS (13)
  1. FISH OIL [Concomitant]
     Route: 048
  2. ZOCOR [Concomitant]
     Route: 048
  3. PLAQUENIL [Concomitant]
     Route: 048
  4. CALCIUM/VITAMIN D [Concomitant]
     Route: 048
  5. IBUPROFEN [Concomitant]
     Dosage: FREQUECY : AS NECASSARY.
     Route: 048
  6. ZANTAC [Concomitant]
     Route: 048
  7. DMARD DRUG (UNK INGREDIENTS) [Concomitant]
     Route: 048
  8. ACTEMRA [Suspect]
     Indication: RHEUMATOID ARTHRITIS
     Dosage: LAST DOSE REEIVED PRIOR TO SAE ON 01 JULY 2010 DOSE 293 MG
     Route: 042
  9. PREDNISONE [Concomitant]
     Route: 048
  10. ACTEMRA [Suspect]
     Route: 042
  11. ZYRTEC [Concomitant]
     Route: 048
  12. CORTICOSTEROID NOS [Concomitant]
  13. PERCOCET [Concomitant]
     Dosage: DOSE: 5/325
     Route: 048

REACTIONS (3)
  - ANAPHYLACTIC REACTION [None]
  - INFUSION RELATED REACTION [None]
  - DIARRHOEA [None]
